FAERS Safety Report 5781353-9 (Version None)
Quarter: 2008Q2

REPORT INFORMATION
  Report Type: 
  Country: None (occurrence: None)
  Receive Date: 20080623
  Receipt Date: 20080618
  Transmission Date: 20081010
  Serious: Yes (Hospitalization, Other)
  Sender: FDA-Public Use
  Company Number: FR-BRISTOL-MYERS SQUIBB COMPANY-14233605

PATIENT
  Age: 80 Year
  Sex: Male

DRUGS (15)
  1. COUMADIN [Suspect]
     Dates: start: 20080423
  2. ASPIRIN [Suspect]
     Dates: start: 20080423
  3. ORGARAN [Suspect]
     Dates: start: 20080408, end: 20080426
  4. KALEORID [Suspect]
     Indication: HYPOKALAEMIA
     Dates: start: 20080415, end: 20080423
  5. PLAVIX [Concomitant]
  6. COAPROVEL [Concomitant]
  7. NIDREL [Concomitant]
  8. FRACTAL [Concomitant]
  9. OMEXEL LP [Concomitant]
  10. RABEPRAZOLE SODIUM [Concomitant]
  11. ARESTAL [Concomitant]
  12. SMECTA [Concomitant]
  13. NEXIUM [Concomitant]
  14. SYMBICORT [Concomitant]
  15. ACETAMINOPHEN [Concomitant]

REACTIONS (3)
  - COLITIS ULCERATIVE [None]
  - HYPERCREATININAEMIA [None]
  - RECTAL HAEMORRHAGE [None]
